FAERS Safety Report 13770565 (Version 1)
Quarter: 2017Q3

REPORT INFORMATION
  Report Type: Spontaneous
  Country: US (occurrence: US)
  Receive Date: 20170719
  Receipt Date: 20170719
  Transmission Date: 20171127
  Serious: Yes (Life-Threatening)
  Sender: FDA-Public Use
  Company Number: None

PATIENT
  Age: 63 Year
  Sex: Male
  Weight: 112.5 kg

DRUGS (4)
  1. DILTIAZEM. [Concomitant]
     Active Substance: DILTIAZEM
  2. TOUJEO [Concomitant]
     Active Substance: INSULIN GLARGINE
  3. GLIMEPIRIDE. [Concomitant]
     Active Substance: GLIMEPIRIDE
  4. METFORMIN HCL 500 MG TABS ER [Suspect]
     Active Substance: METFORMIN HYDROCHLORIDE
     Indication: TYPE 2 DIABETES MELLITUS
     Dosage: ?          OTHER STRENGTH:MG/ML;QUANTITY:360 TABLET(S);?
     Route: 048
     Dates: start: 20170708, end: 20170712

REACTIONS (5)
  - Urticaria [None]
  - Hypersensitivity [None]
  - Eye swelling [None]
  - Swelling face [None]
  - Product contamination [None]

NARRATIVE: CASE EVENT DATE: 20170708
